FAERS Safety Report 4307034-6 (Version None)
Quarter: 2004Q1

REPORT INFORMATION
  Report Type: 
  Country: None (occurrence: None)
  Receive Date: 20040227
  Receipt Date: 20040217
  Transmission Date: 20041129
  Serious: Yes (Other)
  Sender: FDA-Public Use
  Company Number: US-ROCHE-359247

PATIENT
  Age: 14 Year
  Sex: Male
  Weight: 65.8 kg

DRUGS (2)
  1. ACCUTANE [Suspect]
     Indication: DRUG USE FOR UNKNOWN INDICATION
     Route: 048
     Dates: start: 20040210
  2. ACCUTANE [Suspect]
     Route: 048
     Dates: end: 20040210

REACTIONS (2)
  - GRANULOMA [None]
  - HAEMORRHAGE [None]
